FAERS Safety Report 9452871 (Version 2)
Quarter: 2013Q3

REPORT INFORMATION
  Report Type: Spontaneous
  Country: US (occurrence: US)
  Receive Date: 20130812
  Receipt Date: 20130902
  Transmission Date: 20140515
  Serious: Yes (Death, Other)
  Sender: FDA-Public Use
  Company Number: US-PFIZER INC-2013231276

PATIENT
  Age: 41 Year
  Sex: Male

DRUGS (1)
  1. VFEND [Suspect]
     Indication: FUNGAL INFECTION
     Dosage: 200 MG, 2X/DAY
     Dates: start: 20130723

REACTIONS (4)
  - Liver disorder [Fatal]
  - Disease progression [Unknown]
  - Pulmonary oedema [Unknown]
  - Fungal infection [Unknown]
